FAERS Safety Report 13815472 (Version 1)
Quarter: 2017Q3

REPORT INFORMATION
  Report Type: Spontaneous
  Country: US (occurrence: US)
  Receive Date: 20170731
  Receipt Date: 20170731
  Transmission Date: 20171127
  Serious: Yes (Life-Threatening)
  Sender: FDA-Public Use
  Company Number: None

PATIENT
  Sex: Female
  Weight: 81 kg

DRUGS (3)
  1. BIRTH CONTROL PILLS [Concomitant]
     Active Substance: UNSPECIFIED INGREDIENT
  2. VITAMIN D [Concomitant]
     Active Substance: CHOLECALCIFEROL
  3. BOTOX [Suspect]
     Active Substance: ONABOTULINUMTOXINA
     Indication: TENSION HEADACHE
     Dosage: ?          OTHER FREQUENCY:ONCE;?
     Route: 058
     Dates: start: 20170303

REACTIONS (6)
  - Withdrawal syndrome [None]
  - Hemiplegic migraine [None]
  - Neurotoxicity [None]
  - Impaired work ability [None]
  - Panic attack [None]
  - Condition aggravated [None]

NARRATIVE: CASE EVENT DATE: 20170303
